FAERS Safety Report 5146036-7 (Version None)
Quarter: 2006Q4

REPORT INFORMATION
  Report Type: 
  Country: None (occurrence: None)
  Receive Date: 20061108
  Receipt Date: 20061017
  Transmission Date: 20070319
  Serious: Yes (Other)
  Sender: FDA-Public Use
  Company Number: S2006US18398

PATIENT
  Age: 82 Year
  Sex: Female

DRUGS (3)
  1. TRIAMTERENE AND HYDROCHLOROTHIAZIDE [Suspect]
     Indication: DRUG USE FOR UNKNOWN INDICATION
     Route: 048
  2. CARTIA XT [Suspect]
     Indication: DRUG USE FOR UNKNOWN INDICATION
     Route: 048
  3. ANTIBIOTIC UNSPECIFIED [Concomitant]
     Indication: COUGH

REACTIONS (2)
  - COUGH [None]
  - THROMBOSIS [None]
